FAERS Safety Report 15035838 (Version 2)
Quarter: 2018Q2

REPORT INFORMATION
  Report Type: Spontaneous
  Country: US (occurrence: US)
  Receive Date: 20180620
  Receipt Date: 20180622
  Transmission Date: 20180711
  Serious: No
  Sender: FDA-Public Use
  Company Number: US-PFIZER INC-2018248988

PATIENT
  Age: 48 Year
  Sex: Male
  Weight: 85.73 kg

DRUGS (4)
  1. ADVIL [Suspect]
     Active Substance: IBUPROFEN
     Indication: HEADACHE
     Dosage: TWO 200MG LIQUID FILLED CAPSULES
     Route: 048
     Dates: start: 20180616, end: 20180616
  2. ADVIL [Suspect]
     Active Substance: IBUPROFEN
     Indication: FEELING HOT
  3. ADVIL [Suspect]
     Active Substance: IBUPROFEN
     Indication: SUNBURN
  4. ADVIL [Suspect]
     Active Substance: IBUPROFEN
     Indication: HYPERHIDROSIS

REACTIONS (9)
  - Product physical issue [Not Recovered/Not Resolved]
  - Throat irritation [Recovering/Resolving]
  - Cough [Recovering/Resolving]
  - Dysphonia [Not Recovered/Not Resolved]
  - Foreign body in respiratory tract [Recovering/Resolving]
  - Burn oesophageal [Recovering/Resolving]
  - Wheezing [Recovering/Resolving]
  - Oropharyngeal pain [Recovering/Resolving]
  - Retching [Recovering/Resolving]

NARRATIVE: CASE EVENT DATE: 20180616
